FAERS Safety Report 9539017 (Version 7)
Quarter: 2021Q1

REPORT INFORMATION
  Report Type: Report from Study
  Country: DE (occurrence: DE)
  Receive Date: 20130920
  Receipt Date: 20210323
  Transmission Date: 20210420
  Serious: Yes (Death, Hospitalization, Other)
  Sender: FDA-Public Use
  Company Number: PHHO2013DE008915

PATIENT
  Age: 72 Year
  Sex: Male
  Weight: 78 kg

DRUGS (14)
  1. BONVIVA [Concomitant]
     Active Substance: IBANDRONATE SODIUM
     Indication: OSTEOPOROSIS
     Dosage: 3 MG, Q3MO (4/YEAR)
     Route: 042
     Dates: start: 2009
  2. CANAKINUMAB. [Suspect]
     Active Substance: CANAKINUMAB
     Dosage: 300 MG, UNK
     Route: 058
     Dates: start: 20130213, end: 20130410
  3. PANTOZOL [Concomitant]
     Active Substance: PANTOPRAZOLE SODIUM
     Indication: PROPHYLAXIS
     Dosage: 40 MG, QD (1/D)
     Route: 065
     Dates: start: 2008
  4. CANAKINUMAB. [Suspect]
     Active Substance: CANAKINUMAB
     Indication: SCHNITZLER^S SYNDROME
     Dosage: 150 MG, UNK
     Route: 058
     Dates: start: 20120824, end: 20120903
  5. CANAKINUMAB. [Suspect]
     Active Substance: CANAKINUMAB
     Dosage: 300 MG, UNK
     Route: 058
     Dates: start: 20121024, end: 20121121
  6. CANAKINUMAB. [Suspect]
     Active Substance: CANAKINUMAB
     Dosage: 300 MG, UNK
     Route: 058
     Dates: start: 20130508, end: 20130605
  7. CALCIUM + VITAMIN D3 [Concomitant]
     Active Substance: CALCIUM CARBONATE\CHOLECALCIFEROL
     Indication: OSTEOPOROSIS
     Dosage: 1000MG CA, 880 IE VITD3
     Route: 065
  8. PREDNISOLONE. [Concomitant]
     Active Substance: PREDNISOLONE
     Indication: CONJUNCTIVITIS
     Dosage: UNK, 3/D
     Route: 065
     Dates: start: 20130603
  9. ASPIRIN. [Concomitant]
     Active Substance: ASPIRIN
     Indication: CORONARY ARTERY DISEASE
     Dosage: 100 MG, 0?1?0 (1/D)
     Route: 065
     Dates: start: 2010
  10. AMOXICILLIN. [Concomitant]
     Active Substance: AMOXICILLIN
     Indication: PULPITIS DENTAL
     Dosage: 100 MG, 3X/D
     Route: 065
     Dates: start: 20120827, end: 20120901
  11. PLACEBO [Suspect]
     Active Substance: UNSPECIFIED INGREDIENT
     Indication: SCHNITZLER^S SYNDROME
     Dosage: UNK
     Route: 058
     Dates: start: 20120817
  12. BISOPROLOL [Concomitant]
     Active Substance: BISOPROLOL
     Indication: CARDIAC FAILURE
     Dosage: 2.5 MG, QD 1?0?0 (1/D)
     Route: 065
     Dates: start: 2010
  13. TOREM [Concomitant]
     Active Substance: TORSEMIDE
     Indication: CARDIAC FAILURE
     Dosage: 5 MG, QD 1?0?0 (1/D)
     Route: 065
     Dates: start: 2010
  14. DECORTIN H [Concomitant]
     Active Substance: PREDNISOLONE
     Indication: SCHNITZLER^S SYNDROME
     Dosage: 12.5 MG, 1?0?0 QD
     Route: 065
     Dates: start: 20120810

REACTIONS (11)
  - Thrombocytopenia [Unknown]
  - Anaemia [Not Recovered/Not Resolved]
  - Hyperkalaemia [Fatal]
  - Encephalopathy [Fatal]
  - Cardiac failure [Unknown]
  - Pleural effusion [Unknown]
  - Septic shock [Fatal]
  - Sepsis [Fatal]
  - Hepatic failure [Fatal]
  - Renal failure [Fatal]
  - Atypical mycobacterial infection [Unknown]

NARRATIVE: CASE EVENT DATE: 20130626
